FAERS Safety Report 10071708 (Version 1)
Quarter: 2014Q2

REPORT INFORMATION
  Report Type: Report from Study
  Country: IL (occurrence: IL)
  Receive Date: 20140411
  Receipt Date: 20140411
  Transmission Date: 20141212
  Serious: Yes (Hospitalization)
  Sender: FDA-Public Use
  Company Number: IL-ROCHE-1375583

PATIENT
  Age: 63 Year
  Sex: Female

DRUGS (2)
  1. RIBAVIRIN [Suspect]
     Indication: HEPATITIS C
     Route: 048
     Dates: start: 20130404, end: 20130404
  2. CARDILOC [Suspect]
     Indication: PORTAL HYPERTENSION
     Route: 048

REACTIONS (1)
  - Hepatitis acute [Recovered/Resolved]
